FAERS Safety Report 4802313-8 (Version None)
Quarter: 2005Q4

REPORT INFORMATION
  Report Type: 
  Country: None (occurrence: None)
  Receive Date: 20051012
  Receipt Date: 20050930
  Transmission Date: 20060501
  Serious: Yes (Death)
  Sender: FDA-Public Use
  Company Number: HQWYE622301APR05

PATIENT
  Age: 25 Year
  Sex: Male

DRUGS (5)
  1. INDERAL (PROPRANOLOL HYDROCHLORIDE, TABLET, UNSPEC) [Suspect]
     Dosage: ORAL
     Route: 048
  2. COCAINE (COCAINE, ) [Suspect]
  3. UNSPECIFIED ANABOLIC STEROID (UNSPECIFIED ANABOLIC STEROID, ) [Suspect]
  4. VIAGRA [Suspect]
  5. INSULIN [Concomitant]

REACTIONS (1)
  - SUDDEN DEATH [None]
